FAERS Safety Report 5118020-0 (Version None)
Quarter: 2006Q3

REPORT INFORMATION
  Report Type: 
  Country: None (occurrence: None)
  Receive Date: 20060929
  Receipt Date: 20060926
  Transmission Date: 20061208
  Serious: Yes (Hospitalization, Other)
  Sender: FDA-Public Use
  Company Number: US-BRISTOL-MYERS SQUIBB COMPANY-13522503

PATIENT
  Sex: Female

DRUGS (2)
  1. REYATAZ [Suspect]
     Indication: HIV INFECTION
     Route: 048
  2. COMBIVIR [Concomitant]
     Indication: HIV INFECTION

REACTIONS (6)
  - FEELING ABNORMAL [None]
  - HEPATIC ENZYME INCREASED [None]
  - HEPATIC FIBROSIS [None]
  - HEPATITIS [None]
  - NORMAL NEWBORN [None]
  - PREGNANCY [None]
